FAERS Safety Report 23892381 (Version 2)
Quarter: 2025Q2

REPORT INFORMATION
  Report Type: Spontaneous
  Country: CA (occurrence: CA)
  Receive Date: 20240524
  Receipt Date: 20250630
  Transmission Date: 20250717
  Serious: Yes (Death, Life-Threatening, Hospitalization, Disabling, Other)
  Sender: Haleon PLC
  Company Number: CA-002147023-NVSC2024CA010313

PATIENT
  Age: 43 Year
  Sex: Female
  Weight: 97 kg

DRUGS (53)
  1. DICLOFENAC SODIUM [Suspect]
     Active Substance: DICLOFENAC SODIUM
     Indication: Product used for unknown indication
  2. DICLOFENAC SODIUM [Suspect]
     Active Substance: DICLOFENAC SODIUM
     Indication: Rheumatoid arthritis
  3. DICLOFENAC SODIUM [Suspect]
     Active Substance: DICLOFENAC SODIUM
  4. DICLOFENAC SODIUM [Suspect]
     Active Substance: DICLOFENAC SODIUM
  5. DICLOFENAC SODIUM [Suspect]
     Active Substance: DICLOFENAC SODIUM
  6. DICLOFENAC SODIUM [Suspect]
     Active Substance: DICLOFENAC SODIUM
  7. DICLOFENAC SODIUM [Suspect]
     Active Substance: DICLOFENAC SODIUM
     Route: 048
  8. DICLOFENAC SODIUM [Suspect]
     Active Substance: DICLOFENAC SODIUM
  9. COSENTYX [Concomitant]
     Active Substance: SECUKINUMAB
     Indication: Product used for unknown indication
  10. DICLOFENAC POTASSIUM [Suspect]
     Active Substance: DICLOFENAC POTASSIUM
     Indication: Product used for unknown indication
  11. DICLOFENAC POTASSIUM [Suspect]
     Active Substance: DICLOFENAC POTASSIUM
  12. DICLOFENAC POTASSIUM [Suspect]
     Active Substance: DICLOFENAC POTASSIUM
  13. DICLOFENAC POTASSIUM [Suspect]
     Active Substance: DICLOFENAC POTASSIUM
     Route: 048
  14. DICLOFENAC POTASSIUM [Suspect]
     Active Substance: DICLOFENAC POTASSIUM
  15. DICLOFENAC POTASSIUM [Suspect]
     Active Substance: DICLOFENAC POTASSIUM
  16. DICLOFENAC POTASSIUM [Suspect]
     Active Substance: DICLOFENAC POTASSIUM
  17. COSENTYX [Suspect]
     Active Substance: SECUKINUMAB
     Indication: Psoriatic arthropathy
  18. COSENTYX [Suspect]
     Active Substance: SECUKINUMAB
     Indication: Product used for unknown indication
  19. DOXYCYCLINE HYCLATE [Suspect]
     Active Substance: DOXYCYCLINE HYCLATE
     Indication: Product used for unknown indication
  20. DOXYCYCLINE HYCLATE [Suspect]
     Active Substance: DOXYCYCLINE HYCLATE
  21. DOXYCYCLINE HYCLATE [Suspect]
     Active Substance: DOXYCYCLINE HYCLATE
  22. ISOPROPYL ALCOHOL [Suspect]
     Active Substance: ISOPROPYL ALCOHOL
     Indication: Product used for unknown indication
  23. ISOPROPYL ALCOHOL [Suspect]
     Active Substance: ISOPROPYL ALCOHOL
     Route: 048
  24. ISOPROPYL ALCOHOL [Suspect]
     Active Substance: ISOPROPYL ALCOHOL
  25. OXYCODONE [Suspect]
     Active Substance: OXYCODONE
     Indication: Product used for unknown indication
     Dosage: 3 MG, BID
  26. OXYCODONE [Suspect]
     Active Substance: OXYCODONE
  27. OXYCODONE TEREPHTHALATE [Suspect]
     Active Substance: OXYCODONE TEREPHTHALATE
     Indication: Product used for unknown indication
  28. HYALURONIDASE (HUMAN RECOMBINANT) [Suspect]
     Active Substance: HYALURONIDASE (HUMAN RECOMBINANT)
     Indication: Rheumatoid arthritis
  29. ADALIMUMAB [Suspect]
     Active Substance: ADALIMUMAB
     Indication: Rheumatoid arthritis
     Route: 058
  30. ADALIMUMAB [Suspect]
     Active Substance: ADALIMUMAB
     Route: 058
  31. ADALIMUMAB [Suspect]
     Active Substance: ADALIMUMAB
     Route: 058
  32. ERELZI [Suspect]
     Active Substance: ETANERCEPT-SZZS
     Indication: Rheumatoid arthritis
  33. ERELZI [Suspect]
     Active Substance: ETANERCEPT-SZZS
     Route: 058
  34. ERELZI [Suspect]
     Active Substance: ETANERCEPT-SZZS
     Route: 058
  35. ERELZI [Suspect]
     Active Substance: ETANERCEPT-SZZS
  36. ERELZI [Suspect]
     Active Substance: ETANERCEPT-SZZS
     Dosage: 50 MG, QW
     Route: 058
  37. METHOTREXATE [Suspect]
     Active Substance: METHOTREXATE
     Indication: Rheumatoid arthritis
     Route: 013
  38. METHOTREXATE [Suspect]
     Active Substance: METHOTREXATE
     Route: 058
  39. METHOTREXATE [Suspect]
     Active Substance: METHOTREXATE
     Route: 058
  40. METHOTREXATE [Suspect]
     Active Substance: METHOTREXATE
  41. METHOTREXATE [Suspect]
     Active Substance: METHOTREXATE
     Route: 013
  42. METHOTREXATE [Suspect]
     Active Substance: METHOTREXATE
     Route: 013
  43. METHOTREXATE [Suspect]
     Active Substance: METHOTREXATE
     Route: 013
  44. METHOTREXATE [Suspect]
     Active Substance: METHOTREXATE
     Route: 013
  45. METHOTREXATE [Suspect]
     Active Substance: METHOTREXATE
     Route: 013
  46. METHOTREXATE [Suspect]
     Active Substance: METHOTREXATE
     Route: 048
  47. RITUXIMAB [Suspect]
     Active Substance: RITUXIMAB
     Indication: Rheumatoid arthritis
  48. RITUXIMAB [Suspect]
     Active Substance: RITUXIMAB
     Route: 042
  49. RITUXIMAB [Suspect]
     Active Substance: RITUXIMAB
     Route: 042
  50. RITUXIMAB [Suspect]
     Active Substance: RITUXIMAB
     Route: 042
  51. RITUXIMAB [Suspect]
     Active Substance: RITUXIMAB
     Route: 042
  52. VITAMIN C [Suspect]
     Active Substance: ASCORBIC ACID
     Indication: Product used for unknown indication
  53. VITAMIN C [Suspect]
     Active Substance: ASCORBIC ACID

REACTIONS (52)
  - Adjustment disorder with depressed mood [Fatal]
  - Crohn^s disease [Fatal]
  - Deep vein thrombosis postoperative [Fatal]
  - Dyspepsia [Fatal]
  - Dyspnoea [Fatal]
  - Exostosis [Fatal]
  - Folliculitis [Fatal]
  - Gait disturbance [Fatal]
  - Gait inability [Fatal]
  - Grip strength decreased [Fatal]
  - Hepatic cirrhosis [Fatal]
  - Hypercholesterolaemia [Fatal]
  - Impaired healing [Fatal]
  - Incorrect route of product administration [Fatal]
  - Infection [Fatal]
  - Irritable bowel syndrome [Fatal]
  - Joint stiffness [Fatal]
  - Laryngitis [Fatal]
  - Lower limb fracture [Fatal]
  - Lupus vulgaris [Fatal]
  - Lupus-like syndrome [Fatal]
  - Memory impairment [Fatal]
  - Muscle injury [Fatal]
  - Muscular weakness [Fatal]
  - Nasopharyngitis [Fatal]
  - Pain in extremity [Fatal]
  - Peripheral swelling [Fatal]
  - Pneumonia [Fatal]
  - Prescribed underdose [Fatal]
  - Pruritus [Fatal]
  - Psoriasis [Fatal]
  - Pulmonary fibrosis [Fatal]
  - Pyrexia [Fatal]
  - Red blood cell sedimentation rate increased [Fatal]
  - Road traffic accident [Fatal]
  - Sleep disorder [Fatal]
  - Sleep disorder due to general medical condition, insomnia type [Fatal]
  - Stomatitis [Fatal]
  - Therapy non-responder [Fatal]
  - Urticaria [Fatal]
  - Weight decreased [Fatal]
  - Weight increased [Fatal]
  - Wound infection [Fatal]
  - Bone erosion [Fatal]
  - Arthritis [Fatal]
  - Contusion [Fatal]
  - Autoimmune disorder [Fatal]
  - Asthma [Fatal]
  - Anxiety [Fatal]
  - Chest pain [Fatal]
  - Amnesia [Fatal]
  - Confusional state [Fatal]
